FAERS Safety Report 9255902 (Version 2)
Quarter: 2013Q3

REPORT INFORMATION
  Report Type: Report from Study
  Country: BR (occurrence: BR)
  Receive Date: 20130425
  Receipt Date: 20130809
  Transmission Date: 20140515
  Serious: Yes (Disabling)
  Sender: FDA-Public Use
  Company Number: BR-ABBOTT-13P-020-1079724-00

PATIENT
  Sex: Female
  Weight: 70 kg

DRUGS (4)
  1. HUMIRA [Suspect]
     Indication: RHEUMATOID ARTHRITIS
     Route: 058
     Dates: start: 20130116, end: 20130215
  2. CAPTOPRIL [Concomitant]
     Indication: HYPERTENSION
     Dosage: 3 TABLETS DAILY
     Route: 048
     Dates: start: 2003
  3. PREDNISONE [Concomitant]
     Indication: RHEUMATIC DISORDER
     Route: 048
     Dates: start: 2013, end: 20130215
  4. ANTROVIL [Concomitant]
     Indication: PAIN
     Route: 048

REACTIONS (7)
  - Abasia [Not Recovered/Not Resolved]
  - Bedridden [Unknown]
  - Hypertension [Not Recovered/Not Resolved]
  - Pain [Not Recovered/Not Resolved]
  - Pain [Unknown]
  - Swelling [Unknown]
  - Drug ineffective [Unknown]
